FAERS Safety Report 16046077 (Version 1)
Quarter: 2019Q1

REPORT INFORMATION
  Report Type: Spontaneous
  Country: US (occurrence: US)
  Receive Date: 20190207
  Receipt Date: 20190207
  Transmission Date: 20190418
  Serious: Yes (Hospitalization)
  Sender: FDA-Public Use
  Company Number: None

PATIENT
  Age: 62 Year
  Sex: Male

DRUGS (1)
  1. ZARXIO [Suspect]
     Active Substance: FILGRASTIM-SNDZ
     Indication: B-CELL LYMPHOMA
     Dosage: ?          OTHER DOSE:300MCG/0.5ML;?
     Route: 058
     Dates: start: 20181124

REACTIONS (1)
  - Dehydration [None]
